FAERS Safety Report 24194557 (Version 4)
Quarter: 2024Q4

REPORT INFORMATION
  Report Type: Report from Study
  Country: US (occurrence: US)
  Receive Date: 20240809
  Receipt Date: 20241219
  Transmission Date: 20250114
  Serious: Yes (Hospitalization)
  Sender: TAKEDA
  Company Number: US-TAKEDA-2024TUS041182

PATIENT
  Age: 72 Year
  Sex: Female

DRUGS (4)
  1. TEDUGLUTIDE [Suspect]
     Active Substance: TEDUGLUTIDE
     Indication: Product used for unknown indication
     Dosage: 2.79 MILLIGRAM, QD
     Dates: start: 20240405
  2. TEDUGLUTIDE [Suspect]
     Active Substance: TEDUGLUTIDE
     Dosage: 2.79 MILLIGRAM, QD
     Dates: start: 20240419
  3. TEDUGLUTIDE [Suspect]
     Active Substance: TEDUGLUTIDE
     Dosage: 2.79 MILLIGRAM, QD
  4. TEDUGLUTIDE [Suspect]
     Active Substance: TEDUGLUTIDE
     Dosage: 2.79 MILLIGRAM, QD

REACTIONS (11)
  - Device use error [Unknown]
  - Hypoaesthesia [Unknown]
  - Arthralgia [Unknown]
  - Neck pain [Unknown]
  - Pollakiuria [Unknown]
  - Gastrointestinal disorder [Unknown]
  - Injection site mass [Unknown]
  - Injection site discomfort [Unknown]
  - Constipation [Unknown]
  - Memory impairment [Unknown]
  - Needle issue [Unknown]

NARRATIVE: CASE EVENT DATE: 20240611
